FAERS Safety Report 6887857-X (Version None)
Quarter: 2010Q3

REPORT INFORMATION
  Report Type: 
  Country: None (occurrence: None)
  Receive Date: 20100708
  Receipt Date: 20100107
  Transmission Date: 20110219
  Serious: Yes (Other)
  Sender: FDA-Public Use
  Company Number: 2010003310

PATIENT
  Age: 34 Year
  Sex: Female
  Weight: 58 kg

DRUGS (5)
  1. CHANTIX [Suspect]
     Dosage: , ORAL : 1 MG, 2X/DAY
     Route: 048
  2. ATENOLOL [Concomitant]
  3. ALBUTEROL [Concomitant]
  4. SPIRIVA [Concomitant]
  5. NORTRIPTYLINE HCL [Concomitant]

REACTIONS (5)
  - DEPRESSION [None]
  - FATIGUE [None]
  - HYPERSOMNIA [None]
  - SUICIDAL IDEATION [None]
  - WEIGHT INCREASED [None]
